FAERS Safety Report 5703912-1 (Version None)
Quarter: 2008Q2

REPORT INFORMATION
  Report Type: 
  Country: None (occurrence: None)
  Receive Date: 20080409
  Receipt Date: 20080312
  Transmission Date: 20081010
  Serious: Yes (Other)
  Sender: FDA-Public Use
  Company Number: 8030822

PATIENT
  Age: 12 Month
  Sex: Male
  Weight: 0.03 kg

DRUGS (6)
  1. KEPPRA [Suspect]
     Dosage: 500 MG 2/D TRP
     Route: 064
     Dates: start: 20050513
  2. KEPPRA [Suspect]
     Dosage: 500 MG 2/D TRM
     Route: 063
     Dates: start: 20050513
  3. VITAMIN TAB [Concomitant]
  4. CITALOPRAM HYDROBROMIDE [Concomitant]
  5. MONTELUKAST SODIUM [Concomitant]
  6. ALBUTEROL [Concomitant]

REACTIONS (2)
  - DRUG EXPOSURE DURING PREGNANCY [None]
  - SPEECH DISORDER DEVELOPMENTAL [None]
